FAERS Safety Report 16134186 (Version 1)
Quarter: 2019Q1

REPORT INFORMATION
  Report Type: Spontaneous
  Country: JP (occurrence: JP)
  Receive Date: 20190329
  Receipt Date: 20190329
  Transmission Date: 20190418
  Serious: Yes (Other)
  Sender: FDA-Public Use
  Company Number: JP-MYLANLABS-2019M1026513

PATIENT
  Age: 43 Year
  Sex: Male

DRUGS (4)
  1. PREDNISOLONE. [Suspect]
     Active Substance: PREDNISOLONE
     Route: 048
  2. CICLOSPORIN [Suspect]
     Active Substance: CYCLOSPORINE
     Dosage: 150 MILLIGRAM, QD
     Route: 065
  3. CICLOSPORIN [Suspect]
     Active Substance: CYCLOSPORINE
     Indication: SYMPATHETIC OPHTHALMIA
     Dosage: (1.8 MG/KG, MAX. DOSE 2.1 MG/KG)
     Route: 065
  4. PREDNISOLONE. [Suspect]
     Active Substance: PREDNISOLONE
     Indication: SYMPATHETIC OPHTHALMIA
     Dosage: 50 MILLIGRAM, QD
     Route: 048

REACTIONS (5)
  - Mouth ulceration [Unknown]
  - Hypertension [Unknown]
  - Fatigue [Unknown]
  - Angular cheilitis [Unknown]
  - Serous retinal detachment [Unknown]
